FAERS Safety Report 19757524 (Version 1)
Quarter: 2021Q3

REPORT INFORMATION
  Report Type: Spontaneous
  Country: US (occurrence: US)
  Receive Date: 20210828
  Receipt Date: 20210828
  Transmission Date: 20211014
  Serious: Yes (Other)
  Sender: FDA-Public Use
  Company Number: US-ACCORD-236438

PATIENT
  Sex: Male

DRUGS (1)
  1. MYCOPHENOLIC ACID. [Suspect]
     Active Substance: MYCOPHENOLIC ACID
     Indication: POLYNEUROPATHY
     Dosage: STRENGTH: 500MG, DAILY
     Route: 048

REACTIONS (6)
  - Gluten sensitivity [Unknown]
  - Fatigue [Unknown]
  - Coeliac disease [Unknown]
  - Dizziness [Unknown]
  - Off label use [Unknown]
  - Irritable bowel syndrome [Unknown]
